FAERS Safety Report 10873613 (Version 1)
Quarter: 2015Q1

REPORT INFORMATION
  Report Type: Spontaneous
  Country: US (occurrence: None)
  Receive Date: 20150223
  Receipt Date: 20150223
  Transmission Date: 20150721
  Serious: Yes (Other)
  Sender: FDA-Public Use
  Company Number: None

PATIENT
  Age: 35 Year
  Sex: Female
  Weight: 95 kg

DRUGS (3)
  1. TIGECYCLINE [Concomitant]
     Active Substance: TIGECYCLINE
  2. POLYMYXIN B 150MG (1.5MG/KG) [Suspect]
     Active Substance: POLYMYXIN B
     Indication: ESCHERICHIA BACTERAEMIA
     Route: 042
     Dates: start: 20141114, end: 20141114
  3. MEROPENEM. [Concomitant]
     Active Substance: MEROPENEM

REACTIONS (2)
  - Syncope [None]
  - Blood pressure decreased [None]

NARRATIVE: CASE EVENT DATE: 20141106
